FAERS Safety Report 23637494 (Version 2)
Quarter: 2024Q2

REPORT INFORMATION
  Report Type: Report from Study
  Country: IT (occurrence: IT)
  Receive Date: 20240315
  Receipt Date: 20240404
  Transmission Date: 20240715
  Serious: Yes (Other)
  Sender: FDA-Public Use
  Company Number: IT-JNJFOC-20240341506

PATIENT
  Age: 64 Year
  Sex: Female

DRUGS (5)
  1. SPRAVATO [Suspect]
     Active Substance: ESKETAMINE
     Indication: Depression
     Dosage: 28 MG, 2 TOTAL DOSES (27-FEB-2023, 02-MAR-2023).
     Dates: start: 20230227, end: 20230302
  2. SPRAVATO [Suspect]
     Active Substance: ESKETAMINE
     Dosage: 56 MG, 2 TOTAL DOSES (07-MAR-2023, 09-MAR-2023).
     Dates: start: 20230307, end: 20230309
  3. SPRAVATO [Suspect]
     Active Substance: ESKETAMINE
     Dosage: 28 MG, 3 TOTAL DOSES (13-MAR-2023, 16-MAR-2023, 20-MAR-2023).
     Dates: start: 20230313, end: 20230320
  4. SPRAVATO [Suspect]
     Active Substance: ESKETAMINE
     Dosage: 56 MG, 4 TOTAL DOSES (23-MAR-2023, 27-MAR-2023, 30-MAR-2023, 05-APR-2023).
     Dates: start: 20230323, end: 20230405
  5. SPRAVATO [Suspect]
     Active Substance: ESKETAMINE
     Dosage: 84 MG, 26 TOTAL DOSES (12-APR-2023, 18-APR-2023, 26-APR-2023, 04-MAY-2023, 09-MAY-2023, 15-MAY-2023,
     Dates: start: 20230412, end: 20231023

REACTIONS (2)
  - Syncope [Recovered/Resolved]
  - Malaise [Recovered/Resolved]

NARRATIVE: CASE EVENT DATE: 20231023
